FAERS Safety Report 5483897-6 (Version None)
Quarter: 2007Q4

REPORT INFORMATION
  Report Type: 
  Country: None (occurrence: None)
  Receive Date: 20071009
  Receipt Date: 20070926
  Transmission Date: 20080405
  Serious: Yes (Hospitalization)
  Sender: FDA-Public Use
  Company Number: URSO-2007-181

PATIENT
  Age: 88 Year
  Sex: Female

DRUGS (7)
  1. DELURSAN (URSODEOXYCHOLIC ACID) [Suspect]
     Indication: CHOLELITHIASIS
     Dosage: 250 MG; ORAL
     Route: 048
  2. PREVISCAN (FLUINDIONE) [Suspect]
     Indication: ATRIAL FIBRILLATION
     Dosage: ORAL
     Route: 048
  3. CORDARONE [Suspect]
     Indication: ATRIAL FIBRILLATION
     Dosage: ORAL
     Route: 048
  4. DEROXAT (PAROXETINE) [Suspect]
     Indication: DEPRESSION
     Dosage: ORAL
     Route: 048
  5. FOLIC ACID [Suspect]
     Indication: ANAEMIA
     Dosage: ORAL
     Route: 048
  6. OMEPRAZOLE [Suspect]
     Dosage: ORAL
     Route: 048
  7. PRIMAXIN [Suspect]
     Dosage: ORAL
     Route: 048

REACTIONS (10)
  - ABDOMINAL TENDERNESS [None]
  - ANAEMIA [None]
  - CONSTIPATION [None]
  - FAECALOMA [None]
  - FLATULENCE [None]
  - PALLOR [None]
  - PERITONEAL EFFUSION [None]
  - RENAL FAILURE ACUTE [None]
  - SMALL INTESTINAL HAEMORRHAGE [None]
  - VOMITING [None]
